FAERS Safety Report 9046177 (Version 1)
Quarter: 2013Q1

REPORT INFORMATION
  Report Type: Spontaneous
  Country: US (occurrence: US)
  Receive Date: 20130201
  Receipt Date: 20130201
  Transmission Date: 20140127
  Serious: Yes (Hospitalization)
  Sender: FDA-Public Use
  Company Number: US-RANBAXY-2013US-64789

PATIENT
  Age: 60 Year
  Sex: Male

DRUGS (7)
  1. ATORVASTATIN [Suspect]
     Indication: PROPHYLAXIS
     Dosage: 80 MG, QD
     Route: 048
     Dates: start: 20110914
  2. EPLERENONE\PLACEBO [Suspect]
     Indication: ACUTE MYOCARDIAL INFARCTION
     Dosage: 25 MG, QD
     Route: 048
     Dates: start: 20110915, end: 20110915
  3. CARDICOR [Suspect]
     Indication: PROPHYLAXIS
     Dosage: 1.25 MG, QD
     Route: 048
     Dates: start: 20110914, end: 20120507
  4. ASPIRIN [Concomitant]
     Indication: PRODUCT USED FOR UNKNOWN INDICATION
     Dosage: UNK
     Route: 065
     Dates: start: 20110914
  5. PRASUGREL [Concomitant]
     Indication: PRODUCT USED FOR UNKNOWN INDICATION
     Dosage: UNK
     Route: 065
     Dates: start: 20110914
  6. RAMIPRIL [Concomitant]
     Indication: PRODUCT USED FOR UNKNOWN INDICATION
     Dosage: UNK
     Route: 065
     Dates: start: 20110914
  7. GTN [Concomitant]
     Indication: PRODUCT USED FOR UNKNOWN INDICATION
     Dosage: UNK
     Route: 060
     Dates: start: 20110914

REACTIONS (14)
  - Bradycardia [Recovered/Resolved]
  - Musculoskeletal pain [Recovered/Resolved]
  - Hyperhidrosis [Recovering/Resolving]
  - Dizziness [Recovering/Resolving]
  - Dyspnoea [Not Recovered/Not Resolved]
  - Nausea [Recovering/Resolving]
  - Confusional state [Not Recovered/Not Resolved]
  - Lethargy [Unknown]
  - Palpitations [Recovering/Resolving]
  - Syncope [Not Recovered/Not Resolved]
  - Headache [Not Recovered/Not Resolved]
  - Photophobia [Recovered/Resolved]
  - Vertigo [Not Recovered/Not Resolved]
  - Malaise [Not Recovered/Not Resolved]
